FAERS Safety Report 10364879 (Version 1)
Quarter: 2014Q3

REPORT INFORMATION
  Report Type: Spontaneous
  Country: US (occurrence: None)
  Receive Date: 20140804
  Receipt Date: 20140804
  Transmission Date: 20150326
  Serious: Yes (Other)
  Sender: FDA-Public Use
  Company Number: None

PATIENT
  Age: 78 Year
  Sex: Male
  Weight: 81.65 kg

DRUGS (1)
  1. KERASAL [Suspect]
     Active Substance: MENTHOL
     Indication: ONYCHOMYCOSIS
     Dosage: OTC, ONCE DAILY, APPLIED TO A SURFACAE, USUALLY THE SKIN
     Dates: start: 20140801

REACTIONS (1)
  - Product label confusion [None]

NARRATIVE: CASE EVENT DATE: 20140801
